FAERS Safety Report 7106173-4 (Version None)
Quarter: 2010Q4

REPORT INFORMATION
  Report Type: 
  Country: None (occurrence: None)
  Receive Date: 20101116
  Receipt Date: 20101115
  Transmission Date: 20110411
  Serious: Yes (Hospitalization)
  Sender: FDA-Public Use
  Company Number: GXKR2009DE02465

PATIENT
  Age: 76 Year
  Sex: Female

DRUGS (7)
  1. TORSEMIDE [Interacting]
     Indication: HYPERTENSION
     Dosage: 10 MG, BID
     Route: 048
     Dates: start: 20080901, end: 20080908
  2. RAMIPRIL [Suspect]
     Indication: HYPERTENSION
     Dosage: 2.5 MG, QD
     Route: 048
     Dates: start: 20060601
  3. TIAPRIDEX [Concomitant]
  4. TRIMINEURIN (NGX) [Concomitant]
     Indication: SLEEP DISORDER THERAPY
     Dosage: 100 MG, QD
     Route: 048
     Dates: start: 20060601, end: 20080908
  5. OMEP [Concomitant]
  6. BISOPROLOL [Concomitant]
  7. ASS ^CT-ARZNEIMITTEL^ [Concomitant]

REACTIONS (2)
  - DEHYDRATION [None]
  - SYNCOPE [None]
